FAERS Safety Report 9684257 (Version 2)
Quarter: 2013Q4

REPORT INFORMATION
  Report Type: Spontaneous
  Country: GR (occurrence: GR)
  Receive Date: 20131112
  Receipt Date: 20131118
  Transmission Date: 20140711
  Serious: Yes (Life-Threatening, Other)
  Sender: FDA-Public Use
  Company Number: GR-GLAXOSMITHKLINE-B0941505A

PATIENT
  Age: 5 Month
  Sex: Male

DRUGS (1)
  1. ZINACEF [Suspect]
     Indication: PREOPERATIVE CARE
     Dosage: 300MG THREE TIMES PER DAY
     Route: 042
     Dates: start: 20131105

REACTIONS (7)
  - Anaphylactic shock [Recovered/Resolved]
  - Depressed level of consciousness [Recovered/Resolved]
  - Dyspnoea [Recovered/Resolved]
  - Cyanosis [Recovered/Resolved]
  - Blood pressure decreased [Recovered/Resolved]
  - Cough [Recovered/Resolved]
  - Prolonged expiration [Recovered/Resolved]
